FAERS Safety Report 17391179 (Version 2)
Quarter: 2020Q2

REPORT INFORMATION
  Report Type: Spontaneous
  Country: HU (occurrence: HU)
  Receive Date: 20200207
  Receipt Date: 20200516
  Transmission Date: 20200713
  Serious: Yes (Death, Hospitalization, Other)
  Sender: FDA-Public Use
  Company Number: HU-TEVA-2020-HU-1182437

PATIENT
  Age: 37 Year
  Sex: Female

DRUGS (4)
  1. EPITRIGIN [Suspect]
     Active Substance: LAMOTRIGINE
     Indication: EPILEPSY
     Route: 065
  2. LAMICTAL [Suspect]
     Active Substance: LAMOTRIGINE
     Indication: EPILEPSY
     Route: 065
  3. CONVULEX [VALPROIC ACID] [Suspect]
     Active Substance: VALPROIC ACID
     Indication: EPILEPSY
     Route: 065
  4. DEPAKIN CHRONO [Interacting]
     Active Substance: VALPROIC ACID
     Indication: EPILEPSY
     Route: 065

REACTIONS (4)
  - Influenza like illness [Fatal]
  - Drug interaction [Unknown]
  - Skin necrosis [Unknown]
  - Toxic epidermal necrolysis [Fatal]
